FAERS Safety Report 20738590 (Version 1)
Quarter: 2022Q2

REPORT INFORMATION
  Report Type: Other
  Country: None (occurrence: IN)
  Receive Date: 20220422
  Receipt Date: 20220422
  Transmission Date: 20220721
  Serious: Yes (Other)
  Sender: FDA-Public Use
  Company Number: IN-Ajanta Pharma USA Inc.-2128067

PATIENT
  Age: 49 Year
  Sex: Female

DRUGS (3)
  1. VORICONAZOLE [Suspect]
     Active Substance: VORICONAZOLE
     Indication: Keratitis fungal
  2. NATAMYCIN [Concomitant]
     Active Substance: NATAMYCIN
  3. HOMATROPINE [Concomitant]
     Active Substance: HOMATROPINE HYDROBROMIDE

REACTIONS (1)
  - Squamous cell carcinoma [Recovered/Resolved]
